FAERS Safety Report 9501613 (Version 1)
Quarter: 2013Q1

REPORT INFORMATION
  Report Type: Spontaneous
  Country: US (occurrence: None)
  Receive Date: 20130107
  Receipt Date: 20130107
  Transmission Date: 20140127
  Serious: Yes (Other)
  Sender: FDA-Public Use
  Company Number: PHEH2012US021045

PATIENT
  Age: 53 Year
  Sex: Female
  Weight: 73.5 kg

DRUGS (15)
  1. GILENYA (GINGOLIMOD) CAPSULE, 0.5MG [Suspect]
     Indication: RELAPSING-REMITTING MULTIPLE SCLEROSIS
     Route: 048
     Dates: start: 20121025, end: 20121025
  2. ALPRAZOLAM (ALPRAZOLAM) [Concomitant]
  3. DIAZEPAM (DIAZEPAM) [Concomitant]
  4. TYSABRI (NATALIZUMAB) [Concomitant]
  5. MELATONIN (METLATONIN) [Concomitant]
  6. FISH OIL (FISH OIL) [Concomitant]
  7. VITAMIN D (ERGOCALCIFEROL) [Concomitant]
  8. CITRUCEL (METHYLCELLULOSE) [Concomitant]
  9. MIRALAX [Concomitant]
  10. AVINZA (MORPHINE SULFATE) [Concomitant]
  11. DURAGESIC (FENTANYL) [Concomitant]
  12. HEPARIN (HEPARIN) [Concomitant]
  13. TERAZOL (TERCONAZOLE) [Concomitant]
  14. TOPAMAX (TOPIRAMATE) [Concomitant]
  15. TRILEPTAL (OXCARBAZEPINE) [Concomitant]

REACTIONS (1)
  - Sinus bradycardia [None]
